FAERS Safety Report 10363266 (Version 5)
Quarter: 2015Q2

REPORT INFORMATION
  Report Type: Report from Study
  Country: JP (occurrence: JP)
  Receive Date: 20140805
  Receipt Date: 20150513
  Transmission Date: 20150821
  Serious: Yes (Hospitalization)
  Sender: FDA-Public Use
  Company Number: JP-GLAXOSMITHKLINE-B1020541A

PATIENT
  Age: 39 Year
  Sex: Female

DRUGS (6)
  1. BELIMUMAB [Suspect]
     Active Substance: BELIMUMAB
     Indication: SYSTEMIC LUPUS ERYTHEMATOSUS
     Route: 041
     Dates: start: 20120723
  2. CANDESARTAN CILEXETIL. [Concomitant]
     Active Substance: CANDESARTAN CILEXETIL
     Indication: PROPHYLAXIS
     Dosage: 12 MG, QD
     Route: 048
     Dates: start: 20130226
  3. FOLIC ACID. [Concomitant]
     Active Substance: FOLIC ACID
     Indication: PROPHYLAXIS
     Dosage: 5 MG, WE
     Route: 048
     Dates: start: 20130725
  4. BETAMETHASONE [Concomitant]
     Active Substance: BETAMETHASONE
     Indication: SYSTEMIC LUPUS ERYTHEMATOSUS
     Route: 048
     Dates: start: 20140603
  5. SODIUM RABEPRAZOLE [Concomitant]
     Active Substance: RABEPRAZOLE SODIUM
     Indication: DYSPEPSIA
     Route: 048
     Dates: start: 20121112
  6. METHOTREXATE [Concomitant]
     Active Substance: METHOTREXATE
     Indication: SYSTEMIC LUPUS ERYTHEMATOSUS
     Dosage: 8 MG, WE
     Route: 048
     Dates: start: 20130723

REACTIONS (1)
  - Protein urine present [Recovered/Resolved]

NARRATIVE: CASE EVENT DATE: 20121112
